FAERS Safety Report 20845335 (Version 1)
Quarter: 2022Q2

REPORT INFORMATION
  Report Type: Spontaneous
  Country: US (occurrence: None)
  Receive Date: 20220518
  Receipt Date: 20220518
  Transmission Date: 20220721
  Serious: Yes (Hospitalization)
  Sender: FDA-Public Use
  Company Number: US-Eisai Medical Research-EC-2022-114650

PATIENT
  Age: 17 Year

DRUGS (5)
  1. FYCOMPA [Suspect]
     Active Substance: PERAMPANEL
     Indication: Generalised tonic-clonic seizure
     Route: 048
     Dates: end: 2022
  2. FYCOMPA [Suspect]
     Active Substance: PERAMPANEL
     Route: 048
     Dates: start: 2022, end: 2022
  3. FYCOMPA [Suspect]
     Active Substance: PERAMPANEL
     Route: 048
     Dates: start: 2022
  4. KEPPRA [Concomitant]
     Active Substance: LEVETIRACETAM
     Indication: Product used for unknown indication
     Dosage: DOSE AND FREQUENCY UNKNOWN
     Route: 065
  5. KEPPRA [Concomitant]
     Active Substance: LEVETIRACETAM
     Dosage: DOSE AND FREQUENCY UNKNOWN (DOSE REDUCED)
     Route: 065

REACTIONS (2)
  - Aggression [Unknown]
  - Intentional overdose [Recovered/Resolved]

NARRATIVE: CASE EVENT DATE: 20220101
